FAERS Safety Report 7906184-2 (Version None)
Quarter: 2011Q4

REPORT INFORMATION
  Report Type: 
  Country: None (occurrence: None)
  Receive Date: 20111109
  Receipt Date: 20111109
  Transmission Date: 20120403
  Serious: Yes (Life-Threatening)
  Sender: FDA-Public Use
  Company Number: None

PATIENT
  Age: 31 Year
  Sex: Male
  Weight: 123.832 kg

DRUGS (1)
  1. REGLAN [Suspect]
     Indication: ASTHMA
     Dosage: REGLAN 10MG ONE AT BEDTIME
     Dates: start: 20111024, end: 20111028

REACTIONS (10)
  - DIZZINESS [None]
  - URINARY INCONTINENCE [None]
  - ASTHENIA [None]
  - BALANCE DISORDER [None]
  - BLOOD URINE PRESENT [None]
  - HAEMOPTYSIS [None]
  - GRIP STRENGTH DECREASED [None]
  - CHROMATURIA [None]
  - FALL [None]
  - SOMNOLENCE [None]
